FAERS Safety Report 11473563 (Version 1)
Quarter: 2015Q3

REPORT INFORMATION
  Report Type: Spontaneous
  Country: US (occurrence: None)
  Receive Date: 20150908
  Receipt Date: 20150908
  Transmission Date: 20151125
  Serious: No
  Sender: FDA-Public Use
  Company Number: None

PATIENT
  Sex: Male
  Weight: 83.92 kg

DRUGS (3)
  1. MULTIVITS [Concomitant]
  2. FLAX-SEED OIL [Concomitant]
  3. NEURONTIN [Suspect]
     Active Substance: GABAPENTIN
     Indication: MUSCLE SPASMS
     Dosage: 800 MG EA.?3 PILLS PER = 2400 MG?3 PER DAY?BY MOUTH?THERAPY?APPROX 8 YRS AGO?STILL TAKING (LOWER DOSE)
     Route: 048

REACTIONS (7)
  - Pruritus generalised [None]
  - Asthenia [None]
  - Insomnia [None]
  - Dizziness [None]
  - Tremor [None]
  - Incorrect dose administered [None]
  - Blood pressure increased [None]
